FAERS Safety Report 19062803 (Version 1)
Quarter: 2021Q1

REPORT INFORMATION
  Report Type: Spontaneous
  Country: US (occurrence: US)
  Receive Date: 20210326
  Receipt Date: 20210326
  Transmission Date: 20210420
  Serious: Yes (Hospitalization)
  Sender: FDA-Public Use
  Company Number: None

PATIENT
  Age: 30 Year
  Sex: Female

DRUGS (1)
  1. LAMOTRIGINE. [Suspect]
     Active Substance: LAMOTRIGINE
     Route: 048
     Dates: start: 20210203, end: 20210324

REACTIONS (3)
  - Drug eruption [None]
  - Stevens-Johnson syndrome [None]
  - Red man syndrome [None]

NARRATIVE: CASE EVENT DATE: 20210324
